FAERS Safety Report 20550978 (Version 4)
Quarter: 2023Q4

REPORT INFORMATION
  Report Type: Spontaneous
  Country: JP (occurrence: JP)
  Receive Date: 20220304
  Receipt Date: 20231218
  Transmission Date: 20240109
  Serious: Yes (Hospitalization, Other)
  Sender: FDA-Public Use
  Company Number: JP-UNITED THERAPEUTICS-UNT-2021-026893

PATIENT
  Age: 7 Year
  Sex: Male
  Weight: 25.6 kg

DRUGS (15)
  1. UNITUXIN [Suspect]
     Active Substance: DINUTUXIMAB
     Indication: Neuroblastoma recurrent
     Dosage: 17.5 MG/M2, CYCLICAL (CYCLE 1)
     Route: 041
     Dates: start: 20211213, end: 20211216
  2. UNITUXIN [Suspect]
     Active Substance: DINUTUXIMAB
     Dosage: 17.5 MG/M2, CYCLICAL (CYCLE 2)
     Route: 041
     Dates: start: 20220118, end: 20220121
  3. UNITUXIN [Suspect]
     Active Substance: DINUTUXIMAB
     Dosage: 17.5 MG/M2, CYCLICAL (CYCLE 3)
     Route: 041
     Dates: start: 202202, end: 202202
  4. UNITUXIN [Suspect]
     Active Substance: DINUTUXIMAB
     Dosage: 17.5 MG/M2, CYCLICAL  (CYCLE 3)
     Route: 041
     Dates: start: 20220322, end: 20220325
  5. UNITUXIN [Suspect]
     Active Substance: DINUTUXIMAB
     Dosage: 17.5 MG/M2, CYCLICAL  (CYCLE 4)
     Route: 041
     Dates: start: 20220426, end: 20220429
  6. UNITUXIN [Suspect]
     Active Substance: DINUTUXIMAB
     Dosage: 17.5 MG/M2, CYCLICAL (CYCLE 5)
     Route: 041
     Dates: start: 20220530, end: 20220602
  7. FILGRASTIM [Concomitant]
     Active Substance: FILGRASTIM
     Indication: Neuroblastoma recurrent
     Dosage: 5 ?G/KG (CYCLE 1)
     Route: 041
     Dates: start: 20211210, end: 20211223
  8. FILGRASTIM [Concomitant]
     Active Substance: FILGRASTIM
     Dosage: UNK (CYCLE 2)
     Route: 041
     Dates: start: 20220210, end: 20220213
  9. FILGRASTIM [Concomitant]
     Active Substance: FILGRASTIM
     Dosage: 5 ?G/KG (CYCLE 3)
     Route: 041
     Dates: start: 20220319, end: 20220401
  10. FILGRASTIM [Concomitant]
     Active Substance: FILGRASTIM
     Dosage: 5 ?G/KG (CYCLE 5)
     Route: 041
     Dates: start: 20220527, end: 20220609
  11. MORPHINE HYDROCHLORIDE [Concomitant]
     Active Substance: MORPHINE HYDROCHLORIDE
     Indication: Product used for unknown indication
     Dosage: UNK
     Route: 065
  12. TECELEUKIN [Concomitant]
     Active Substance: TECELEUKIN
     Indication: Neuroblastoma recurrent
     Dosage: 750,000 UNITS/M2 (CYCLE 2)
     Route: 065
     Dates: start: 20220111, end: 20220114
  13. TECELEUKIN [Concomitant]
     Active Substance: TECELEUKIN
     Dosage: 1,000,000 UNITS/M2 (CYCLE 2)
     Route: 065
     Dates: start: 20220118, end: 20220121
  14. TECELEUKIN [Concomitant]
     Active Substance: TECELEUKIN
     Dosage: 750,000 UNITS/M2 (CYCLE 4)
     Route: 065
     Dates: start: 20220419, end: 20220422
  15. TECELEUKIN [Concomitant]
     Active Substance: TECELEUKIN
     Dosage: 1,000,000 UNITS/M2 (CYCLE 4)
     Route: 065
     Dates: start: 20220426, end: 20220429

REACTIONS (12)
  - Neuroblastoma recurrent [Unknown]
  - COVID-19 [Recovered/Resolved]
  - C-reactive protein increased [Recovering/Resolving]
  - Abdominal pain [Recovered/Resolved]
  - Arthralgia [Recovered/Resolved]
  - Alanine aminotransferase increased [Recovering/Resolving]
  - Aspartate aminotransferase increased [Recovering/Resolving]
  - Platelet count decreased [Not Recovered/Not Resolved]
  - Pyrexia [Recovered/Resolved]
  - Pyrexia [Recovered/Resolved]
  - Pyrexia [Recovered/Resolved]
  - Pyrexia [Recovered/Resolved]

NARRATIVE: CASE EVENT DATE: 20211213
